FAERS Safety Report 8116055-7 (Version None)
Quarter: 2012Q1

REPORT INFORMATION
  Report Type: 
  Country: None (occurrence: None)
  Receive Date: 20120119
  Receipt Date: 20120110
  Transmission Date: 20120608
  Serious: Yes (Other)
  Sender: FDA-Public Use
  Company Number: 2012030783

PATIENT
  Age: 75 Year
  Sex: Female
  Weight: 49.4421 kg

DRUGS (14)
  1. MULTIVITAMIN (MULTIVITAMIN /00831701/) [Concomitant]
  2. HIZENTRA [Suspect]
  3. WELLBUTRIN SR [Concomitant]
  4. SYMBICORT [Concomitant]
  5. PRILOSEC [Concomitant]
  6. SELENIUM (SELENIUM) [Concomitant]
  7. ALBUTEROL [Concomitant]
  8. IBUPROFEN [Concomitant]
  9. OXYGEN (OXYGEN) [Concomitant]
  10. POTASSIUM CHLORIDE [Concomitant]
  11. HIZENTRA [Suspect]
     Indication: IMMUNODEFICIENCY COMMON VARIABLE
     Dosage: (5 G 1X/WEEK, 25 ML ON ONE TO TWO SITES OVER ONE HOUR SUBCUTANEOUS), (SUBCUTANEOUS)
     Route: 058
     Dates: start: 20100928
  12. HIZENTRA [Suspect]
     Indication: IMMUNODEFICIENCY COMMON VARIABLE
     Dosage: (5 G 1X/WEEK, 25 ML ON ONE TO TWO SITES OVER ONE HOUR SUBCUTANEOUS), (SUBCUTANEOUS)
     Route: 058
     Dates: start: 20120106
  13. BUFFERIN (BUFFERIN /00009201/) [Concomitant]
  14. PREMARIN [Concomitant]

REACTIONS (1)
  - URINARY TRACT INFECTION [None]
